FAERS Safety Report 9525002 (Version 1)
Quarter: 2013Q1

REPORT INFORMATION
  Report Type: Spontaneous
  Country: US (occurrence: None)
  Receive Date: 20130314
  Receipt Date: 20130314
  Transmission Date: 20140127
  Serious: No
  Sender: FDA-Public Use
  Company Number: 1301USA006111

PATIENT
  Age: 43 Year
  Sex: Female

DRUGS (3)
  1. PEGINTRON (PEGINTERFERON ALFA-2B) POWDER FOR INJECTION [Suspect]
     Indication: HEPATITIS C
     Dosage: REDIPEN
     Dates: start: 20121127
  2. RIBAVIRIN [Suspect]
     Indication: HEPATITIS C
     Dosage: UNK
     Dates: start: 20121127
  3. VICTRELIS (BOCEPREVIR) CAPSULE [Suspect]
     Dosage: UNK
     Dates: start: 20121226

REACTIONS (3)
  - Influenza [None]
  - Pyrexia [None]
  - Vomiting [None]
